FAERS Safety Report 21584937 (Version 1)
Quarter: 2022Q4

REPORT INFORMATION
  Report Type: Spontaneous
  Country: US (occurrence: US)
  Receive Date: 20221111
  Receipt Date: 20221111
  Transmission Date: 20230113
  Serious: No
  Sender: FDA-Public Use
  Company Number: US-BRISTOL-MYERS SQUIBB COMPANY-2022-135666

PATIENT
  Age: 90 Year
  Sex: Male

DRUGS (2)
  1. ELIQUIS [Suspect]
     Active Substance: APIXABAN
     Indication: Cerebrovascular accident prophylaxis
     Dosage: DOSE : UNAVAILABLE;     FREQ : TWICE A DAY
     Route: 065
  2. ELIQUIS [Suspect]
     Active Substance: APIXABAN
     Route: 065

REACTIONS (2)
  - Blood creatine increased [Unknown]
  - Glomerular filtration rate decreased [Unknown]
